FAERS Safety Report 4848578-8 (Version None)
Quarter: 2005Q4

REPORT INFORMATION
  Report Type: 
  Country: None (occurrence: None)
  Receive Date: 20051206
  Receipt Date: 20051115
  Transmission Date: 20060501
  Serious: Yes (Death)
  Sender: FDA-Public Use
  Company Number: US200511001021

PATIENT
  Sex: Female

DRUGS (3)
  1. FORTEO [Suspect]
     Dates: start: 20041119, end: 20051009
  2. FORTEO PEN (FORTEO PEN) [Concomitant]
  3. PEN, DISPOSABLE [Concomitant]

REACTIONS (3)
  - FALL [None]
  - INTESTINAL OBSTRUCTION [None]
  - SEPSIS [None]
